FAERS Safety Report 5830472-7 (Version None)
Quarter: 2008Q3

REPORT INFORMATION
  Report Type: 
  Country: None (occurrence: None)
  Receive Date: 20080801
  Receipt Date: 20070601
  Transmission Date: 20090109
  Serious: No
  Sender: FDA-Public Use
  Company Number: US-BRISTOL-MYERS SQUIBB COMPANY-13800800

PATIENT
  Sex: Female

DRUGS (2)
  1. COUMADIN [Suspect]
     Indication: THROMBOSIS
     Route: 048
     Dates: start: 20070301
  2. OCTREOTIDE ACETATE [Suspect]
     Indication: GASTRIC DISORDER
     Dates: start: 20070529

REACTIONS (1)
  - INTERNATIONAL NORMALISED RATIO INCREASED [None]
